FAERS Safety Report 15788045 (Version 1)
Quarter: 2019Q1

REPORT INFORMATION
  Report Type: Spontaneous
  Country: US (occurrence: US)
  Receive Date: 20190104
  Receipt Date: 20190104
  Transmission Date: 20190417
  Serious: Yes (Death)
  Sender: FDA-Public Use
  Company Number: US-ROCHE-2239314

PATIENT
  Age: 82 Year
  Sex: Female

DRUGS (1)
  1. ACTEMRA [Suspect]
     Active Substance: TOCILIZUMAB
     Indication: PRODUCT USED FOR UNKNOWN INDICATION
     Dosage: 200 MG/10 ML AND 400 MG/20 ML SDV, 80 MG/4ML
     Route: 042
     Dates: start: 20180215, end: 20181219

REACTIONS (1)
  - Death [Fatal]

NARRATIVE: CASE EVENT DATE: 20181231
